FAERS Safety Report 9729553 (Version 1)
Quarter: 2013Q4

REPORT INFORMATION
  Report Type: Spontaneous
  Country: US (occurrence: US)
  Receive Date: 20131204
  Receipt Date: 20131204
  Transmission Date: 20140711
  Serious: Yes (Other)
  Sender: FDA-Public Use
  Company Number: US-ABBVIE-13P-163-1174061-00

PATIENT
  Sex: Female
  Weight: 40.86 kg

DRUGS (7)
  1. HUMIRA [Suspect]
     Indication: CROHN^S DISEASE
     Dosage: 4 INJECTIONS
     Route: 058
     Dates: start: 2011, end: 2011
  2. HUMIRA [Suspect]
     Dosage: 2 INJECTIONS
     Route: 058
     Dates: start: 2011, end: 2011
  3. HUMIRA [Suspect]
     Route: 058
     Dates: start: 2011, end: 2012
  4. IMURAN [Concomitant]
     Indication: CROHN^S DISEASE
     Route: 048
  5. ALLEGRA [Concomitant]
     Indication: HYPERSENSITIVITY
     Route: 048
  6. LIALDA [Concomitant]
     Indication: CROHN^S DISEASE
     Route: 048
     Dates: start: 201311
  7. VENTOLIN [Concomitant]
     Indication: ASTHMA
     Route: 055

REACTIONS (11)
  - Hypoaesthesia [Recovered/Resolved]
  - Cerebrovascular accident [Recovered/Resolved]
  - Hypertension [Not Recovered/Not Resolved]
  - Heart rate increased [Recovered/Resolved]
  - Heart rate irregular [Recovered/Resolved]
  - Dyspnoea [Not Recovered/Not Resolved]
  - Cough [Not Recovered/Not Resolved]
  - Nasopharyngitis [Not Recovered/Not Resolved]
  - Respiratory tract congestion [Not Recovered/Not Resolved]
  - Anal fistula [Not Recovered/Not Resolved]
  - Drug ineffective [Not Recovered/Not Resolved]
